FAERS Safety Report 15428113 (Version 1)
Quarter: 2018Q3

REPORT INFORMATION
  Report Type: Spontaneous
  Country: PL (occurrence: PL)
  Receive Date: 20180926
  Receipt Date: 20180926
  Transmission Date: 20181010
  Serious: Yes (Other)
  Sender: FDA-Public Use
  Company Number: PL-ROCHE-2186701

PATIENT
  Age: 71 Year
  Sex: Female

DRUGS (7)
  1. AVASTIN [Suspect]
     Active Substance: BEVACIZUMAB
     Indication: COLON CANCER
     Route: 042
     Dates: start: 20171013
  2. LEVOFOLINIC ACID [Suspect]
     Active Substance: LEVOLEUCOVORIN
     Indication: COLON CANCER
     Dosage: ON DAY 1 AND 2
     Route: 065
     Dates: start: 20171013
  3. OXALIPLATIN. [Suspect]
     Active Substance: OXALIPLATIN
     Indication: COLON CANCER
     Dosage: ON DAY 1
     Route: 042
     Dates: start: 201608
  4. FLUOROURACIL. [Suspect]
     Active Substance: FLUOROURACIL
     Indication: COLON CANCER
     Route: 040
     Dates: start: 20171013
  5. IRINOTECAN [Suspect]
     Active Substance: IRINOTECAN
     Indication: COLON CANCER
     Dosage: ON DAY 1
     Route: 065
     Dates: start: 20171013
  6. FLUOROURACIL. [Suspect]
     Active Substance: FLUOROURACIL
     Dosage: OVER 22 HOURS ON DAYS 1 AND 2
     Route: 042
  7. CAPECITABINE. [Suspect]
     Active Substance: CAPECITABINE
     Indication: COLON CANCER
     Dosage: 2X1000 MG/M2 ON DAYS 1?14
     Route: 048
     Dates: start: 201608

REACTIONS (11)
  - Spinal osteoarthritis [Unknown]
  - Platelet count abnormal [Unknown]
  - Neutrophilia [Unknown]
  - Metastases to liver [Unknown]
  - Vertebral lesion [Unknown]
  - Hepatomegaly [Unknown]
  - Pulmonary mass [Unknown]
  - Leukocytosis [Unknown]
  - Monocytosis [Unknown]
  - Polyneuropathy [Unknown]
  - Diarrhoea [Unknown]
